FAERS Safety Report 12663177 (Version 2)
Quarter: 2016Q4

REPORT INFORMATION
  Report Type: Spontaneous
  Country: US (occurrence: US)
  Receive Date: 20160818
  Receipt Date: 20161012
  Transmission Date: 20170207
  Serious: No
  Sender: FDA-Public Use
  Company Number: PHEH2016US020710

PATIENT
  Sex: Male
  Weight: 67.12 kg

DRUGS (1)
  1. TYKERB [Suspect]
     Active Substance: LAPATINIB DITOSYLATE
     Indication: BREAST CANCER MALE
     Dosage: 5 DF, QD
     Route: 048
     Dates: start: 20150723, end: 20151019

REACTIONS (1)
  - Drug ineffective [Unknown]
